FAERS Safety Report 4328695-1 (Version None)
Quarter: 2004Q1

REPORT INFORMATION
  Report Type: 
  Country: None (occurrence: None)
  Receive Date: 20040329
  Receipt Date: 20031216
  Transmission Date: 20041129
  Serious: Yes (Hospitalization)
  Sender: FDA-Public Use
  Company Number: 03P-163-0244854-00

PATIENT
  Age: 74 Year
  Sex: Female
  Weight: 107.0489 kg

DRUGS (2)
  1. HUMIRA [Suspect]
     Indication: RHEUMATOID ARTHRITIS
     Dosage: 40 MG, 1 IN 2 WK, SUBCUTANEOUS
     Route: 058
     Dates: start: 20030822
  2. METHOTREXATE [Concomitant]

REACTIONS (3)
  - DYSPNOEA [None]
  - SKIN DESQUAMATION [None]
  - URINARY TRACT INFECTION [None]
